FAERS Safety Report 6615461-7 (Version None)
Quarter: 2010Q1

REPORT INFORMATION
  Report Type: 
  Country: None (occurrence: None)
  Receive Date: 20100305
  Receipt Date: 20100222
  Transmission Date: 20100710
  Serious: Yes (Hospitalization)
  Sender: FDA-Public Use
  Company Number: BE-PFIZER INC-2009252219

PATIENT
  Age: 73 Year
  Sex: Male
  Weight: 59 kg

DRUGS (5)
  1. SUNITINIB MALATE [Suspect]
     Indication: HEPATIC NEOPLASM MALIGNANT
     Dosage: 37.5 MG, 1X/DAY
     Route: 048
     Dates: start: 20090702, end: 20090811
  2. FENTANYL [Concomitant]
     Indication: PAIN
     Dosage: 50 UG, CYCLIC
     Dates: start: 20090301
  3. OMEPRAZOLE [Concomitant]
     Indication: PROPHYLAXIS AGAINST GASTROINTESTINAL ULCER
     Dosage: 40 MG, 1X/DAY
     Dates: start: 20090201
  4. METHYLPREDNISOLONE [Concomitant]
     Indication: OEDEMA PERIPHERAL
     Dosage: 32 MG, 1X/DAY
     Dates: start: 20090619
  5. KAMILLOSAN MUNDSPRAY [Concomitant]
     Dosage: UNK
     Dates: start: 20090731

REACTIONS (1)
  - ANAL ABSCESS [None]
